FAERS Safety Report 4535071-5 (Version None)
Quarter: 2004Q4

REPORT INFORMATION
  Report Type: 
  Country: None (occurrence: None)
  Receive Date: 20041214
  Receipt Date: 20040903
  Transmission Date: 20050328
  Serious: Yes (Other)
  Sender: FDA-Public Use
  Company Number: 2004230209US

PATIENT
  Age: 65 Year
  Sex: Female
  Weight: 90.7 kg

DRUGS (19)
  1. BEXTRA [Suspect]
     Indication: OSTEOARTHRITIS
     Dosage: 10 MG, BID
     Dates: start: 20021001
  2. ALLEGRA [Concomitant]
  3. PRAVACHOL [Concomitant]
  4. AMBIEN [Concomitant]
  5. ATENOLOL [Concomitant]
  6. AVAPRO [Concomitant]
  7. ACIPHEX [Concomitant]
  8. DARVOCET-N 100 [Concomitant]
  9. FLEXERIL [Concomitant]
  10. FLONASE [Concomitant]
  11. LEVBID (HYOSCYAMINE SULFATE) [Concomitant]
  12. LORTAB [Concomitant]
  13. LASIX [Concomitant]
  14. POTASSIUM CHLORIDE [Concomitant]
  15. PRAVIGUARD 80/81 [Concomitant]
  16. PAXIL [Concomitant]
  17. ZETIA [Concomitant]
  18. MULTIVITAMINS (ERGOCALCIFEROL, RETINOL, PANTHENOL) [Concomitant]
  19. VITAMIN E [Concomitant]

REACTIONS (4)
  - CARDIAC FAILURE CONGESTIVE [None]
  - DRUG INEFFECTIVE [None]
  - DYSPNOEA [None]
  - OEDEMA [None]
